FAERS Safety Report 17628444 (Version 3)
Quarter: 2020Q4

REPORT INFORMATION
  Report Type: Report from Study
  Country: None (occurrence: CA)
  Receive Date: 20200406
  Receipt Date: 20201118
  Transmission Date: 20210113
  Serious: Yes (Other)
  Sender: FDA-Public Use
  Company Number: CA-ABBVIE-20K-028-3350188-00

PATIENT
  Age: 52 Year
  Sex: Male

DRUGS (1)
  1. HUMIRA [Suspect]
     Active Substance: ADALIMUMAB
     Indication: CROHN^S DISEASE
     Route: 058
     Dates: start: 20151116, end: 20201021

REACTIONS (6)
  - Back pain [Unknown]
  - Spinal compression fracture [Unknown]
  - Non-Hodgkin^s lymphoma [Not Recovered/Not Resolved]
  - Dry skin [Unknown]
  - Rash [Unknown]
  - Accident [Unknown]

NARRATIVE: CASE EVENT DATE: 2020
